FAERS Safety Report 18219214 (Version 1)
Quarter: 2020Q3

REPORT INFORMATION
  Report Type: Spontaneous
  Country: GB (occurrence: GB)
  Receive Date: 20200901
  Receipt Date: 20200901
  Transmission Date: 20201103
  Serious: Yes (Other)
  Sender: FDA-Public Use
  Company Number: GB-PFIZER INC-2020335084

PATIENT
  Age: 72 Year
  Sex: Female
  Weight: 69.85 kg

DRUGS (5)
  1. DALACIN [Suspect]
     Active Substance: CLINDAMYCIN
     Dosage: 5 G, 1X/DAY FOR 7 DAYS
     Route: 067
     Dates: start: 20200731, end: 20200806
  2. SYMBICORT [Concomitant]
     Active Substance: BUDESONIDE\FORMOTEROL FUMARATE DIHYDRATE
     Dosage: UNK
  3. RIVAROXABAN [Suspect]
     Active Substance: RIVAROXABAN
     Dosage: UNK
  4. VENTOLIN [Concomitant]
     Active Substance: ALBUTEROL SULFATE
     Dosage: UNK
  5. COLESTYRAMINE [Concomitant]
     Active Substance: CHOLESTYRAMINE
     Dosage: UNK

REACTIONS (3)
  - Diarrhoea haemorrhagic [Not Recovered/Not Resolved]
  - Mucous stools [Unknown]
  - Groin pain [Recovering/Resolving]

NARRATIVE: CASE EVENT DATE: 20200803
